FAERS Safety Report 6356907-1 (Version None)
Quarter: 2009Q3

REPORT INFORMATION
  Report Type: 
  Country: None (occurrence: None)
  Receive Date: 20090910
  Receipt Date: 20090910
  Transmission Date: 20100115
  Serious: Yes (Hospitalization)
  Sender: FDA-Public Use
  Company Number: None

PATIENT
  Age: 56 Year
  Sex: Male
  Weight: 134.3 kg

DRUGS (2)
  1. INSULIN [Suspect]
     Indication: TYPE 1 DIABETES MELLITUS
     Dosage: 15 UNITS BID SQ
     Route: 058
     Dates: start: 20081018
  2. INSULIN [Suspect]
     Indication: TYPE 1 DIABETES MELLITUS
     Dosage: 30UNITS EVERYDAY SQ
     Route: 058
     Dates: start: 20081018

REACTIONS (4)
  - CONFUSIONAL STATE [None]
  - HYPOGLYCAEMIA [None]
  - HYPOPHAGIA [None]
  - MENTAL STATUS CHANGES [None]
